FAERS Safety Report 8605310-X (Version None)
Quarter: 2012Q3

REPORT INFORMATION
  Report Type: 
  Country: None (occurrence: None)
  Receive Date: 20120820
  Receipt Date: 20120811
  Transmission Date: 20120928
  Serious: No
  Sender: FDA-Public Use
  Company Number: US-BAYER-2012-082592

PATIENT

DRUGS (2)
  1. ALEVE (CAPLET) [Suspect]
     Indication: BACK PAIN
     Dosage: 6 DF, UNK
     Route: 048
  2. ALEVE (CAPLET) [Suspect]
     Indication: MUSCLE SPASMS

REACTIONS (1)
  - ANXIETY [None]
